FAERS Safety Report 12778794 (Version 6)
Quarter: 2018Q3

REPORT INFORMATION
  Report Type: Report from Study
  Country: AU (occurrence: AU)
  Receive Date: 20160926
  Receipt Date: 20180719
  Transmission Date: 20181010
  Serious: Yes (Life-Threatening, Hospitalization)
  Sender: FDA-Public Use
  Company Number: AU-ROCHE-1833625

PATIENT
  Age: 76 Year
  Sex: Male
  Weight: 70.15 kg

DRUGS (32)
  1. CYCLOPHOSPHAMIDE. [Suspect]
     Active Substance: CYCLOPHOSPHAMIDE
     Indication: B-CELL LYMPHOMA
     Dosage: INITIAL DOSE PER PROTOCOL?THE MOST RECENT DOSE OF CYCLOPHOSPHAMIDE 1460 MG PRIOR TO THE EVENT WAS ON
     Route: 042
     Dates: start: 20160712
  2. PEGFILGRASTIM [Concomitant]
     Active Substance: PEGFILGRASTIM
     Indication: PROPHYLAXIS
     Route: 065
     Dates: start: 20160825, end: 20160825
  3. DOXORUBICIN [Suspect]
     Active Substance: DOXORUBICIN
     Indication: B-CELL LYMPHOMA
     Dosage: INITIAL DOSE PER PROTOCOL?THE MOST RECENT DOSE OF DOXORUBICIN 98 MG PRIOR TO THE EVENT ONSET WAS ON
     Route: 042
     Dates: start: 20160712
  4. VALACICLOVIR [Concomitant]
     Active Substance: VALACYCLOVIR HYDROCHLORIDE
     Indication: PROPHYLAXIS
     Route: 065
     Dates: start: 20160624
  5. LAMIVUDINE. [Concomitant]
     Active Substance: LAMIVUDINE
     Indication: PROPHYLAXIS
  6. DOMPERIDONE [Concomitant]
     Active Substance: DOMPERIDONE
     Indication: NAUSEA
     Route: 065
     Dates: start: 20160929
  7. TAMSULOSIN [Concomitant]
     Active Substance: TAMSULOSIN
     Indication: URINARY RETENTION
     Route: 065
     Dates: start: 20160927, end: 20161006
  8. PREDNISONE. [Suspect]
     Active Substance: PREDNISONE
     Indication: B-CELL LYMPHOMA
     Dosage: INITIAL DOSE AND FREQUENCY PER PROTOCOL?THE MOST RECENT DOSE OF PREDNISONE 100 MG PRIOR TO THE EVENT
     Route: 048
     Dates: start: 20160712
  9. BACTRIM DS [Concomitant]
     Active Substance: SULFAMETHOXAZOLE\TRIMETHOPRIM
     Indication: ANTIFUNGAL PROPHYLAXIS
     Route: 065
     Dates: start: 20160627
  10. MAXOLON [Concomitant]
     Active Substance: METOCLOPRAMIDE HYDROCHLORIDE
     Indication: NAUSEA
     Route: 065
     Dates: start: 20160822
  11. PARACETAMOL [Concomitant]
     Active Substance: ACETAMINOPHEN
     Route: 065
     Dates: start: 20160912, end: 20160912
  12. RITUXIMAB. [Suspect]
     Active Substance: RITUXIMAB
     Indication: B-CELL LYMPHOMA
     Dosage: ROUTE AND UNIT DOSE PER PROTOCOL?THE MOST RECENT DOSE OF RITUXIMAB 700 MG PRIOR TO THE EVENT ONSET W
     Route: 042
     Dates: start: 20160711
  13. LACTULOSE. [Concomitant]
     Active Substance: LACTULOSE
     Indication: CONSTIPATION
     Route: 065
     Dates: start: 20160713
  14. ENOXAPARIN [Concomitant]
     Active Substance: ENOXAPARIN
     Indication: THROMBOSIS PROPHYLAXIS
     Route: 065
     Dates: start: 20160926, end: 20161014
  15. LAMIVUDINE. [Concomitant]
     Active Substance: LAMIVUDINE
     Indication: HEPATITIS B REACTIVATION
     Route: 065
     Dates: start: 20160623
  16. COLOXYL WITH SENNA [Concomitant]
     Active Substance: DOCUSATE\SENNOSIDES
     Indication: CONSTIPATION
     Route: 065
     Dates: start: 20160810
  17. PARACETAMOL [Concomitant]
     Active Substance: ACETAMINOPHEN
     Indication: PROPHYLAXIS
     Route: 065
     Dates: start: 20160822, end: 20160822
  18. MAGMIN [Concomitant]
     Active Substance: MAGNESIUM ASPARTATE
     Indication: ELECTROLYTE SUBSTITUTION THERAPY
     Route: 065
     Dates: start: 20161003, end: 20161003
  19. VINCRISTINE [Suspect]
     Active Substance: VINCRISTINE
     Indication: B-CELL LYMPHOMA
     Dosage: INITIAL DOSE PER PROTOCOL?THE MOST RECENT DOSE OF VINCRISTINE 2 MG PRIOR TO THE EVENT ONSET WAS ON 1
     Route: 042
     Dates: start: 20160712
  20. ALLOPURINOL. [Concomitant]
     Active Substance: ALLOPURINOL
     Indication: PROPHYLAXIS
     Route: 065
     Dates: start: 20160624
  21. RANITIDINE. [Concomitant]
     Active Substance: RANITIDINE
     Indication: GASTROOESOPHAGEAL REFLUX DISEASE
     Route: 065
     Dates: start: 20160702
  22. CYCLIZINE [Concomitant]
     Active Substance: CYCLIZINE
     Indication: NAUSEA
     Route: 065
     Dates: start: 20160822
  23. ONDANSETRON [Concomitant]
     Active Substance: ONDANSETRON
     Indication: NAUSEA
     Route: 065
     Dates: start: 20160822
  24. LORAZEPAM. [Concomitant]
     Active Substance: LORAZEPAM
     Indication: NAUSEA
     Route: 065
     Dates: start: 20160930, end: 20161002
  25. LORATADINE. [Concomitant]
     Active Substance: LORATADINE
     Indication: PROPHYLAXIS
     Route: 065
     Dates: start: 20160822, end: 20160822
  26. GRANISETRON [Concomitant]
     Active Substance: GRANISETRON
     Indication: PROPHYLAXIS OF NAUSEA AND VOMITING
     Route: 065
     Dates: start: 20160822, end: 20160822
  27. PEGFILGRASTIM [Concomitant]
     Active Substance: PEGFILGRASTIM
     Route: 065
     Dates: start: 20160915, end: 20160915
  28. METOCLOPRAMIDE. [Concomitant]
     Active Substance: METOCLOPRAMIDE
     Indication: PROPHYLAXIS OF NAUSEA AND VOMITING
     Route: 065
     Dates: start: 20160712
  29. VENETOCLAX. [Suspect]
     Active Substance: VENETOCLAX
     Indication: B-CELL LYMPHOMA
     Dosage: ROUTE AND UNIT DOSE PER PROTOCOL?THE MOST RECENT DOSE OF VENETOCLAX 800 MG PRIOR TO THE EVENT ONSET
     Route: 048
     Dates: start: 20160715
  30. TEMAZEPAM. [Concomitant]
     Active Substance: TEMAZEPAM
     Indication: INSOMNIA
     Route: 065
     Dates: start: 20160725
  31. LORATADINE. [Concomitant]
     Active Substance: LORATADINE
     Route: 065
     Dates: start: 20160912, end: 20160912
  32. GRANISETRON [Concomitant]
     Active Substance: GRANISETRON
     Route: 065
     Dates: start: 20160912, end: 20160912

REACTIONS (1)
  - Sepsis [Recovered/Resolved]

NARRATIVE: CASE EVENT DATE: 20160921
